FAERS Safety Report 20631812 (Version 1)
Quarter: 2022Q1

REPORT INFORMATION
  Report Type: Spontaneous
  Country: US (occurrence: US)
  Receive Date: 20220324
  Receipt Date: 20220324
  Transmission Date: 20220424
  Serious: Yes (Hospitalization, Other)
  Sender: FDA-Public Use
  Company Number: US-CHEPLA-2022001720

PATIENT
  Age: 72 Year
  Sex: Male

DRUGS (4)
  1. ETOPOSIDE PHOSPHATE [Suspect]
     Active Substance: ETOPOSIDE PHOSPHATE
     Indication: Diffuse large B-cell lymphoma
     Dosage: R-ICE THERAPY
     Route: 065
  2. RITUXIMAB [Suspect]
     Active Substance: RITUXIMAB
     Indication: Diffuse large B-cell lymphoma
     Dosage: R-ICE THERAPY
     Route: 065
  3. IFOSFAMIDE [Suspect]
     Active Substance: IFOSFAMIDE
     Indication: Diffuse large B-cell lymphoma
     Dosage: R-ICE THERAPY
     Route: 065
  4. CARBOPLATIN [Suspect]
     Active Substance: CARBOPLATIN
     Indication: Diffuse large B-cell lymphoma
     Dosage: R-ICE THERAPY
     Route: 065

REACTIONS (12)
  - Staphylococcal bacteraemia [Recovering/Resolving]
  - Febrile neutropenia [Recovering/Resolving]
  - Pneumonia [Recovering/Resolving]
  - COVID-19 [Recovering/Resolving]
  - Respiratory failure [Recovering/Resolving]
  - Asthenia [Recovering/Resolving]
  - Oxygen consumption increased [Recovering/Resolving]
  - Dyspnoea [Recovering/Resolving]
  - Hypoxia [Recovering/Resolving]
  - Bronchial secretion retention [Recovering/Resolving]
  - Increased bronchial secretion [Recovering/Resolving]
  - Cough [Recovering/Resolving]
